FAERS Safety Report 9340948 (Version 1)
Quarter: 2013Q2

REPORT INFORMATION
  Report Type: Spontaneous
  Country: US (occurrence: US)
  Receive Date: 20130610
  Receipt Date: 20130610
  Transmission Date: 20140414
  Serious: Yes (Hospitalization)
  Sender: FDA-Public Use
  Company Number: US-B.I. PHARMACEUTICALS,INC./RIDGEFIELD-2013-BI-16157BP

PATIENT
  Age: 63 Year
  Sex: Female

DRUGS (8)
  1. MIRAPEX [Suspect]
     Indication: RESTLESS LEGS SYNDROME
     Dosage: 0.125 MG
     Route: 048
     Dates: start: 201009
  2. LISINOPRIL [Concomitant]
     Indication: DIABETES MELLITUS
     Dosage: 5 MG
     Route: 048
     Dates: start: 201006
  3. NOVOLIN R [Concomitant]
     Indication: DIABETES MELLITUS
     Dosage: FORMULATION: INTRAVENOUS, STRENGTH: SLIDING SCALE
     Route: 042
     Dates: start: 201212
  4. TRAMADOL [Concomitant]
     Indication: ABDOMINAL PAIN
     Dosage: 100 MG
     Route: 048
     Dates: start: 20130530
  5. GLYBURIDE [Concomitant]
     Indication: DIABETES MELLITUS
     Dosage: 10 MG
     Route: 048
     Dates: start: 201008
  6. METFORMIN [Concomitant]
     Indication: DIABETES MELLITUS
     Dosage: 1000 MG
     Route: 048
     Dates: start: 201009
  7. LOVASTATIN [Concomitant]
     Indication: BLOOD CHOLESTEROL INCREASED
     Dosage: 40 MG
     Route: 048
     Dates: start: 201006
  8. CARVEDLIOL [Concomitant]
     Indication: HYPERTENSION
     Dosage: 6.25 MG
     Route: 048
     Dates: start: 201004

REACTIONS (2)
  - Fall [Recovered/Resolved]
  - Spinal fracture [Not Recovered/Not Resolved]
